FAERS Safety Report 8786089 (Version 1)
Quarter: 2012Q4

REPORT INFORMATION
  Report Type: 
  Country: FR (occurrence: FR)
  Receive Date: 20120914
  Receipt Date: 20120914
  Transmission Date: 20130627
  Serious: Yes (Hospitalization)
  Sender: FDA-Public Use
  Company Number: FR-VERTEX PHARMACEUTICAL INC.-2012-021203

PATIENT
  Age: 71 Year
  Sex: Female

DRUGS (5)
  1. INCIVO [Suspect]
     Indication: PRODUCT USED FOR UNKNOWN INDICATION
     Dosage: 6 DF, qd
     Route: 048
     Dates: start: 20120127, end: 20120323
  2. PEGASYS [Suspect]
     Indication: PRODUCT USED FOR UNKNOWN INDICATION
     Dosage: 135 ?g, weekly
     Route: 058
     Dates: start: 20120127
  3. PEGASYS [Suspect]
     Dosage: 96 ?g, weekly
     Route: 058
     Dates: start: 20120525, end: 20120608
  4. COPEGUS [Suspect]
     Indication: PRODUCT USED FOR UNKNOWN INDICATION
     Dosage: 800 mg, qd
     Route: 048
     Dates: start: 20120127, end: 20120323
  5. COPEGUS [Suspect]
     Dosage: 200 mg, qd
     Route: 048
     Dates: start: 20120416, end: 20120608

REACTIONS (2)
  - Pancytopenia [Not Recovered/Not Resolved]
  - Aplasia [Not Recovered/Not Resolved]
